FAERS Safety Report 12526844 (Version 1)
Quarter: 2016Q3

REPORT INFORMATION
  Report Type: Other
  Country: ES (occurrence: ES)
  Receive Date: 20160705
  Receipt Date: 20160705
  Transmission Date: 20161109
  Serious: Yes (Hospitalization)
  Sender: FDA-Public Use
  Company Number: ES-NOVEL LABORATORIES, INC-2016-02915

PATIENT
  Age: 48 Year
  Sex: Female

DRUGS (1)
  1. OXYCODONE [Suspect]
     Active Substance: OXYCODONE
     Indication: FIBROMYALGIA
     Route: 065

REACTIONS (8)
  - Depression [Recovered/Resolved]
  - Insomnia [Recovered/Resolved]
  - Patient uncooperative [Recovered/Resolved]
  - Social avoidant behaviour [Recovered/Resolved]
  - Suicide attempt [Unknown]
  - Delusion [Recovered/Resolved]
  - Irritability [Recovered/Resolved]
  - Ideas of reference [Recovered/Resolved]
